FAERS Safety Report 8066987-3 (Version None)
Quarter: 2012Q1

REPORT INFORMATION
  Report Type: 
  Country: None (occurrence: None)
  Receive Date: 20120124
  Receipt Date: 20120119
  Transmission Date: 20120608
  Serious: Yes (Other)
  Sender: FDA-Public Use
  Company Number: ES-MERCK-1011ESP00017

PATIENT
  Age: 69 Year
  Sex: Male

DRUGS (7)
  1. JANUMET [Suspect]
     Indication: TYPE 2 DIABETES MELLITUS
     Route: 048
     Dates: start: 20100501
  2. ENOXAPARIN SODIUM [Concomitant]
     Route: 058
  3. CARVEDILOL [Concomitant]
     Route: 048
  4. ASPIRIN [Concomitant]
     Route: 065
  5. FUROSEMIDE [Concomitant]
     Route: 048
     Dates: end: 20101009
  6. REPAGLINIDE [Concomitant]
     Route: 048
  7. AMIODARONE HYDROCHLORIDE [Concomitant]
     Route: 048
     Dates: end: 20101009

REACTIONS (3)
  - MYOCARDIAL ISCHAEMIA [None]
  - CARDIAC FAILURE [None]
  - ACUTE MYOCARDIAL INFARCTION [None]
